FAERS Safety Report 7018768-7 (Version None)
Quarter: 2010Q3

REPORT INFORMATION
  Report Type: 
  Country: None (occurrence: None)
  Receive Date: 20100928
  Receipt Date: 20100916
  Transmission Date: 20110219
  Serious: Yes (Other)
  Sender: FDA-Public Use
  Company Number: US-ELI_LILLY_AND_COMPANY-US201006001026

PATIENT
  Sex: Female

DRUGS (8)
  1. FORTEO [Suspect]
     Indication: OSTEOPOROSIS
     Dosage: 20 UG, DAILY (1/D)
     Dates: start: 20090701
  2. LASIX [Concomitant]
  3. K-DUR [Concomitant]
  4. SYNTHROID [Concomitant]
     Indication: THYROID DISORDER
  5. NORVASC [Concomitant]
     Dosage: 5 MG, UNK
  6. ADVAIR DISKUS 100/50 [Concomitant]
  7. RESTORIL [Concomitant]
  8. TEKTURNA [Concomitant]

REACTIONS (7)
  - ARTHRALGIA [None]
  - CARDIAC ABLATION [None]
  - CARDIAC PACEMAKER INSERTION [None]
  - GAIT DISTURBANCE [None]
  - MUSCULAR WEAKNESS [None]
  - MUSCULOSKELETAL PAIN [None]
  - PAIN IN EXTREMITY [None]
